FAERS Safety Report 6890695-5 (Version None)
Quarter: 2010Q3

REPORT INFORMATION
  Report Type: 
  Country: None (occurrence: None)
  Receive Date: 20100731
  Receipt Date: 20090214
  Transmission Date: 20110219
  Serious: No
  Sender: FDA-Public Use
  Company Number: US-PFIZER INC-2009163742

PATIENT
  Sex: Female

DRUGS (4)
  1. LIPITOR [Suspect]
     Indication: BLOOD CHOLESTEROL ABNORMAL
     Dosage: UNK
     Route: 048
     Dates: start: 19980824, end: 19981001
  2. MELOXICAM [Concomitant]
     Dosage: 7.5 MG, 1X/DAY
  3. FOSAMAX [Concomitant]
     Dosage: 70 MG, WEEKLY
  4. SYNTHROID [Concomitant]
     Dosage: 0.88 MG, 1X/DAY

REACTIONS (3)
  - ARTHRALGIA [None]
  - DRUG INEFFECTIVE [None]
  - MYALGIA [None]
